FAERS Safety Report 8216345-3 (Version None)
Quarter: 2012Q1

REPORT INFORMATION
  Report Type: 
  Country: None (occurrence: None)
  Receive Date: 20120316
  Receipt Date: 20120313
  Transmission Date: 20120608
  Serious: Yes (Hospitalization)
  Sender: FDA-Public Use
  Company Number: US-AMGEN-USASP2012016215

PATIENT
  Age: 59 Year
  Sex: Female
  Weight: 85.9 kg

DRUGS (5)
  1. FILGRASTIM [Suspect]
     Indication: BREAST CANCER
     Dosage: 5 MUG/KG, UNK
     Route: 058
     Dates: start: 20081006
  2. PACLITAXEL [Suspect]
     Indication: BREAST CANCER
     Dosage: 80 MG/M2, UNK
     Route: 042
     Dates: start: 20081006
  3. DOXORUBICIN HCL [Suspect]
     Indication: BREAST CANCER
     Dosage: 60 MG/M2, UNK
     Route: 042
     Dates: start: 20081006
  4. CYCLOPHOSPHAMIDE [Suspect]
     Indication: BREAST CANCER
     Dosage: 600 MG/M2, UNK
     Route: 042
     Dates: start: 20081006
  5. BEVACIZUMAB [Suspect]
     Indication: BREAST CANCER
     Dosage: UNK
     Route: 042
     Dates: start: 20081006

REACTIONS (6)
  - WHITE BLOOD CELL COUNT DECREASED [None]
  - OPEN WOUND [None]
  - NEUTROPHIL COUNT DECREASED [None]
  - ANAEMIA [None]
  - WOUND DEHISCENCE [None]
  - PURULENT DISCHARGE [None]
